FAERS Safety Report 17566480 (Version 1)
Quarter: 2020Q1

REPORT INFORMATION
  Report Type: Spontaneous
  Country: US (occurrence: US)
  Receive Date: 20200316
  Receipt Date: 20200316
  Transmission Date: 20200409
  Serious: No
  Sender: FDA-Public Use
  Company Number: None

PATIENT
  Age: 27 Month

DRUGS (1)
  1. GENOTROPIN [Suspect]
     Active Substance: SOMATROPIN
     Indication: HYPOPITUITARISM
     Dosage: ?          OTHER DOSE:0.4MG ALTERNATED;OTHER FREQUENCY:OTHER;?
     Route: 058
     Dates: start: 202003

REACTIONS (2)
  - Product label confusion [None]
  - Incorrect dose administered [None]

NARRATIVE: CASE EVENT DATE: 20200312
